FAERS Safety Report 19909528 (Version 1)
Quarter: 2021Q4

REPORT INFORMATION
  Report Type: Spontaneous
  Country: US (occurrence: US)
  Receive Date: 20211001
  Receipt Date: 20211001
  Transmission Date: 20220303
  Serious: No
  Sender: FDA-Public Use
  Company Number: US-AMARIN PHARMA, INC.-2021AMR000441

PATIENT
  Age: 61 Year
  Sex: Female
  Weight: 63.56 kg

DRUGS (3)
  1. VASCEPA [Suspect]
     Active Substance: ICOSAPENT ETHYL
     Indication: Blood triglycerides increased
     Dosage: TWO, ONE GRAM CAPSULES AT BREAKFAST, THREE, ONE GRAM CAPSULES AT LUNCH, AND THREE, ONE GRAM CAPSULES
     Route: 048
  2. FENOFIBRATE [Concomitant]
     Active Substance: FENOFIBRATE
     Indication: Lipids abnormal
  3. LIVALO [Concomitant]
     Active Substance: PITAVASTATIN CALCIUM
     Indication: Lipids abnormal

REACTIONS (6)
  - Gastrointestinal disorder [Unknown]
  - Abdominal discomfort [Unknown]
  - Constipation [Unknown]
  - Prescribed overdose [Not Recovered/Not Resolved]
  - Product odour abnormal [Unknown]
  - Product adhesion issue [Unknown]
